FAERS Safety Report 25613730 (Version 1)
Quarter: 2025Q3

REPORT INFORMATION
  Report Type: Spontaneous
  Country: JP (occurrence: JP)
  Receive Date: 20250728
  Receipt Date: 20250728
  Transmission Date: 20251020
  Serious: Yes (Other)
  Sender: TAKEDA
  Company Number: JP-MMM-Otsuka-QHY3I2UF

PATIENT
  Age: 43 Year
  Sex: Female

DRUGS (1)
  1. ICLUSIG [Suspect]
     Active Substance: PONATINIB HYDROCHLORIDE
     Indication: Acute lymphocytic leukaemia recurrent

REACTIONS (2)
  - End stage renal disease [Unknown]
  - Renal artery stenosis [Unknown]
